FAERS Safety Report 4539924-3 (Version None)
Quarter: 2004Q4

REPORT INFORMATION
  Report Type: 
  Country: None (occurrence: None)
  Receive Date: 20041223
  Receipt Date: 20041217
  Transmission Date: 20050328
  Serious: Yes (Other)
  Sender: FDA-Public Use
  Company Number: 6012280F

PATIENT
  Age: 54 Year
  Sex: Female

DRUGS (5)
  1. NIASPAN [Suspect]
     Indication: HYPERLIPIDAEMIA
     Dosage: 375 MG PO
     Route: 048
  2. ALBUTEROL [Concomitant]
  3. PIZOTIFEN MALEATE [Concomitant]
  4. CARBIMAZOLE [Concomitant]
  5. FORMOTEROL FUMARATE [Concomitant]

REACTIONS (8)
  - CHEST PAIN [None]
  - CONJUNCTIVITIS [None]
  - DRY MOUTH [None]
  - PAIN [None]
  - PARAESTHESIA [None]
  - RASH ERYTHEMATOUS [None]
  - TONGUE OEDEMA [None]
  - TREMOR [None]
